FAERS Safety Report 4898170-4 (Version None)
Quarter: 2006Q1

REPORT INFORMATION
  Report Type: 
  Country: None (occurrence: None)
  Receive Date: 20060127
  Receipt Date: 20060117
  Transmission Date: 20060701
  Serious: Yes (Other)
  Sender: FDA-Public Use
  Company Number: 2005-12-0648

PATIENT
  Age: 44 Year
  Sex: Male
  Weight: 84.8226 kg

DRUGS (3)
  1. ASMANEX TWISTHALER [Suspect]
     Indication: ASTHMA
     Dosage: INHALATION
     Route: 055
     Dates: start: 20051123, end: 20051125
  2. NASONEX [Concomitant]
  3. NEXIUM [Concomitant]

REACTIONS (2)
  - LOCALISED OEDEMA [None]
  - THROAT TIGHTNESS [None]
